FAERS Safety Report 5079105-0 (Version None)
Quarter: 2006Q3

REPORT INFORMATION
  Report Type: 
  Country: None (occurrence: None)
  Receive Date: 20060808
  Receipt Date: 20060727
  Transmission Date: 20061208
  Serious: Yes (Life-Threatening, Hospitalization)
  Sender: FDA-Public Use
  Company Number: PHHO2005PL08708

PATIENT
  Age: 37 Year
  Sex: Female
  Weight: 48 kg

DRUGS (6)
  1. FTY720 VS MMF (MYCOPHENOLFATE MOFETIL COMP-MYC+) [Suspect]
     Indication: RENAL TRANSPLANT
     Dosage: 1 G, BID, ORAL
     Route: 048
     Dates: start: 20041028, end: 20050705
  2. ISONIAZID [Suspect]
     Dosage: 0.2 G/DAY, ORAL
     Route: 048
     Dates: start: 20050624, end: 20050703
  3. PYRAZINAMIDE [Suspect]
     Dosage: 1.0 G/DAY, ORAL
     Route: 048
     Dates: start: 20050625, end: 20050702
  4. RIFAMPICIN [Suspect]
     Dosage: 0.45 G/DAY, ORAL
     Route: 048
     Dates: start: 20050627, end: 20050703
  5. TACROLIMUS (TACROLIMUS) [Concomitant]
  6. PREDNISONE TAB [Concomitant]

REACTIONS (7)
  - DIALYSIS [None]
  - DISEASE PROGRESSION [None]
  - DRUG INEFFECTIVE [None]
  - GRAFT DYSFUNCTION [None]
  - HEPATIC FAILURE [None]
  - PLEURAL EFFUSION [None]
  - PULMONARY TUBERCULOSIS [None]
